FAERS Safety Report 5664167-X (Version None)
Quarter: 2008Q1

REPORT INFORMATION
  Report Type: 
  Country: None (occurrence: None)
  Receive Date: 20080312
  Receipt Date: 20080227
  Transmission Date: 20080703
  Serious: Yes (Other)
  Sender: FDA-Public Use
  Company Number: 233847K07USA

PATIENT
  Age: 56 Year
  Sex: Female
  Weight: 67.1324 kg

DRUGS (2)
  1. REBIF [Suspect]
     Indication: MULTIPLE SCLEROSIS
     Dosage: 44 MCG, 3 IN 1 WEEKS, SUBCUTANEOUS; 22 MCG, 3 IN 1 WEEKS, SUBCUTANEOUS
     Route: 058
     Dates: start: 20070112
  2. UNSPECIFIED MEDICATIONS (ALL OTHER THERAPEUTIC PRODUCTS) [Concomitant]

REACTIONS (10)
  - CONDITION AGGRAVATED [None]
  - CONSTIPATION [None]
  - CYSTITIS [None]
  - DECREASED APPETITE [None]
  - DIARRHOEA [None]
  - INJECTION SITE REACTION [None]
  - IRRITABILITY [None]
  - URINARY INCONTINENCE [None]
  - URINARY RETENTION [None]
  - WEIGHT DECREASED [None]
